FAERS Safety Report 4475531-9 (Version None)
Quarter: 2004Q4

REPORT INFORMATION
  Report Type: 
  Country: None (occurrence: None)
  Receive Date: 20041015
  Receipt Date: 20041001
  Transmission Date: 20050328
  Serious: Yes (Life-Threatening, Hospitalization, Disabling, Other)
  Sender: FDA-Public Use
  Company Number: US-MERCK-0410USA00328

PATIENT
  Age: 68 Year
  Sex: Female

DRUGS (9)
  1. VICODIN [Concomitant]
     Route: 065
  2. DARVOCET-N 100 [Concomitant]
     Route: 065
  3. FOSAMAX [Concomitant]
     Route: 048
  4. FLEXERIL [Concomitant]
     Indication: BACK PAIN
     Route: 048
  5. FLEXERIL [Concomitant]
     Indication: ARTHRALGIA
     Route: 048
  6. CARDIZEM [Concomitant]
     Indication: PRINZMETAL ANGINA
     Route: 065
  7. PRIMIDONE [Concomitant]
     Route: 065
  8. VIOXX [Suspect]
     Indication: EPICONDYLITIS
     Route: 048
     Dates: start: 20030423, end: 20040101
  9. ZOLOFT [Concomitant]
     Indication: DEPRESSION
     Route: 065

REACTIONS (4)
  - DEEP VEIN THROMBOSIS [None]
  - MYOCARDIAL INFARCTION [None]
  - PANCREATITIS [None]
  - SEPSIS [None]
